FAERS Safety Report 6278692-4 (Version None)
Quarter: 2009Q3

REPORT INFORMATION
  Report Type: 
  Country: None (occurrence: None)
  Receive Date: 20090721
  Receipt Date: 20090707
  Transmission Date: 20100115
  Serious: Yes (Hospitalization, Other)
  Sender: FDA-Public Use
  Company Number: 09-072

PATIENT
  Age: 2 Week
  Sex: Female

DRUGS (2)
  1. CEFOTAXIME [Suspect]
     Indication: SEPSIS
     Dosage: INTRAVENOUS
     Route: 042
  2. AMPICILLIN [Concomitant]

REACTIONS (3)
  - CHOLELITHIASIS [None]
  - DILATATION INTRAHEPATIC DUCT ACQUIRED [None]
  - HEPATOMEGALY [None]
